FAERS Safety Report 20656130 (Version 1)
Quarter: 2022Q1

REPORT INFORMATION
  Report Type: Spontaneous
  Country: CN (occurrence: CN)
  Receive Date: 20220330
  Receipt Date: 20220330
  Transmission Date: 20220424
  Serious: Yes (Other)
  Sender: FDA-Public Use
  Company Number: CN-BAXTER-2022BAX006885

PATIENT
  Age: 8 Year
  Sex: Male
  Weight: 28 kg

DRUGS (16)
  1. CYCLOPHOSPHAMIDE [Suspect]
     Active Substance: CYCLOPHOSPHAMIDE
     Indication: Acute lymphocytic leukaemia
     Dosage: 0.9% SODIUM CHLORIDE INJECTION 250 ML DILUTED WITH CYCLOPHOSPHAMIDE FOR INJECTION 900 MG.
     Route: 041
     Dates: start: 20220226, end: 20220226
  2. CYCLOPHOSPHAMIDE [Suspect]
     Active Substance: CYCLOPHOSPHAMIDE
     Dosage: DOSE RE-INTRODUCED.
     Route: 041
  3. SODIUM CHLORIDE [Suspect]
     Active Substance: SODIUM CHLORIDE
     Indication: Medication dilution
     Dosage: 0.9% SODIUM CHLORIDE INJECTION 250 ML DILUTED WITH CYCLOPHOSPHAMIDE FOR INJECTION 900 MG
     Route: 041
     Dates: start: 20220226, end: 20220226
  4. SODIUM CHLORIDE [Suspect]
     Active Substance: SODIUM CHLORIDE
     Dosage: DOSE RE-INTRODUCED.
     Route: 041
  5. SODIUM CHLORIDE [Suspect]
     Active Substance: SODIUM CHLORIDE
     Dosage: SODIUM CHLORIDE INJECTION 90 MG DILUTED WITH CYTARABINE HYDROCHLORIDE FOR INJECTION 35 MG.
     Route: 037
     Dates: start: 20220222, end: 20220222
  6. SODIUM CHLORIDE [Suspect]
     Active Substance: SODIUM CHLORIDE
     Dosage: DOSE RE-INTRODUCED.
     Route: 037
  7. SODIUM CHLORIDE [Suspect]
     Active Substance: SODIUM CHLORIDE
     Dosage: SODIUM CHLORIDE INJECTION 90 MG DILUTED WITH METHOTREXATE FOR INJECTION 12.5 MG.
     Route: 037
     Dates: start: 20220222, end: 20220222
  8. SODIUM CHLORIDE [Suspect]
     Active Substance: SODIUM CHLORIDE
     Dosage: DOSE RE-INTRODUCED.
     Route: 037
  9. DEXTROSE [Suspect]
     Active Substance: DEXTROSE
     Indication: Medication dilution
     Dosage: GLUCOSE INJECTION 50 ML DILUTED WITH CYTARABINE HYDROCHLORIDE FOR INJECTION 45 MG
     Route: 041
     Dates: start: 20220226, end: 20220304
  10. DEXTROSE [Suspect]
     Active Substance: DEXTROSE
     Dosage: DOSE RE-INTRODUCED.
     Route: 041
  11. METHOTREXATE [Suspect]
     Active Substance: METHOTREXATE
     Indication: Acute lymphocytic leukaemia
     Dosage: SODIUM CHLORIDE INJECTION 90 MG DILUTED WITH METHOTREXATE FOR INJECTION 12.5 MG.
     Route: 037
     Dates: start: 20220222, end: 20220222
  12. METHOTREXATE [Suspect]
     Active Substance: METHOTREXATE
     Dosage: DOSE RE-INTRODUCED.
     Route: 037
  13. CYTARABINE HYDROCHLORIDE [Suspect]
     Active Substance: CYTARABINE HYDROCHLORIDE
     Indication: Acute lymphocytic leukaemia
     Dosage: SODIUM CHLORIDE INJECTION 90 MG DILUTED WITH CYTARABINE HYDROCHLORIDE FOR INJECTION 35 MG.
     Route: 037
     Dates: start: 20220222, end: 20220222
  14. CYTARABINE HYDROCHLORIDE [Suspect]
     Active Substance: CYTARABINE HYDROCHLORIDE
     Dosage: DOSE RE-INTRODUCED.
     Route: 037
  15. CYTARABINE HYDROCHLORIDE [Suspect]
     Active Substance: CYTARABINE HYDROCHLORIDE
     Dosage: GLUCOSE INJECTION 50 ML DILUTED WITH CYTARABINE HYDROCHLORIDE FOR INJECTION 45 MG.
     Route: 041
     Dates: start: 20220226, end: 20220304
  16. CYTARABINE HYDROCHLORIDE [Suspect]
     Active Substance: CYTARABINE HYDROCHLORIDE
     Dosage: DOSE RE-INTRODUCED.
     Route: 041

REACTIONS (1)
  - Myelosuppression [Recovering/Resolving]

NARRATIVE: CASE EVENT DATE: 20220312
